FAERS Safety Report 24358525 (Version 1)
Quarter: 2024Q3

REPORT INFORMATION
  Report Type: Spontaneous
  Country: US (occurrence: US)
  Receive Date: 20240924
  Receipt Date: 20240924
  Transmission Date: 20241017
  Serious: No
  Sender: BRISTOL MYERS SQUIBB
  Company Number: US-BRISTOL-MYERS SQUIBB COMPANY-2024-151414

PATIENT
  Age: 51 Year
  Sex: Male
  Weight: 122.47 kg

DRUGS (1)
  1. CAMZYOS [Suspect]
     Active Substance: MAVACAMTEN
     Indication: Hypertrophic cardiomyopathy
     Dosage: DOSE : UNAVAILABLE;     FREQ : 1 TABLET ONCE A DAY
     Route: 048
     Dates: start: 202407

REACTIONS (1)
  - Tooth disorder [Unknown]

NARRATIVE: CASE EVENT DATE: 20240923
